FAERS Safety Report 10901076 (Version 1)
Quarter: 2015Q1

REPORT INFORMATION
  Report Type: Spontaneous
  Country: ES (occurrence: ES)
  Receive Date: 20150310
  Receipt Date: 20150310
  Transmission Date: 20150721
  Serious: Yes (Death, Hospitalization, Other)
  Sender: FDA-Public Use
  Company Number: PHHY2015ES026279

PATIENT
  Age: 64 Year
  Sex: Male

DRUGS (2)
  1. ZOLEDRONATE [Suspect]
     Active Substance: ZOLEDRONIC ACID
     Indication: PLASMA CELL MYELOMA
     Dosage: 4 MG, QMO
     Route: 042
  2. ZOLEDRONATE [Suspect]
     Active Substance: ZOLEDRONIC ACID
     Dosage: UNK
     Route: 065

REACTIONS (14)
  - General physical health deterioration [Unknown]
  - Oral cavity fistula [Unknown]
  - Oral disorder [Unknown]
  - Oral discomfort [Unknown]
  - Pneumonia pseudomonal [Fatal]
  - Osteonecrosis of jaw [Unknown]
  - Actinomycosis [Unknown]
  - Haemoptysis [Fatal]
  - Pancytopenia [Fatal]
  - Pain in jaw [Unknown]
  - Exposed bone in jaw [Unknown]
  - Periodontitis [Unknown]
  - Plasma cell myeloma [Unknown]
  - Mucosal inflammation [Unknown]
